FAERS Safety Report 26179216 (Version 1)
Quarter: 2025Q4

REPORT INFORMATION
  Report Type: Spontaneous
  Country: US (occurrence: US)
  Receive Date: 20251219
  Receipt Date: 20251219
  Transmission Date: 20260119
  Serious: Yes (Other)
  Sender: AUROBINDO
  Company Number: US-MLMSERVICE-20251201-PI734580-00043-1

PATIENT
  Age: 56 Year
  Sex: Male

DRUGS (7)
  1. ALLOPURINOL [Suspect]
     Active Substance: ALLOPURINOL
     Indication: Gout
     Dosage: 300 MILLIGRAM, ONCE A DAY
     Route: 065
     Dates: start: 2021
  2. DOXYCYCLINE [Suspect]
     Active Substance: DOXYCYCLINE
     Indication: Fatigue
     Dosage: UNK
     Route: 065
  3. DOXYCYCLINE [Suspect]
     Active Substance: DOXYCYCLINE
     Indication: Malaise
  4. DOXYCYCLINE [Suspect]
     Active Substance: DOXYCYCLINE
     Indication: Productive cough
  5. PREDNISONE [Concomitant]
     Active Substance: PREDNISONE
     Indication: Fatigue
     Dosage: 100 MILLIGRAM, ONCE A DAY
     Route: 065
  6. PREDNISONE [Concomitant]
     Active Substance: PREDNISONE
     Indication: Malaise
  7. PREDNISONE [Concomitant]
     Active Substance: PREDNISONE
     Indication: Productive cough

REACTIONS (2)
  - Drug reaction with eosinophilia and systemic symptoms [Unknown]
  - Persistent generalised lymphadenopathy [Recovered/Resolved]
